FAERS Safety Report 18175873 (Version 2)
Quarter: 2020Q3

REPORT INFORMATION
  Report Type: Spontaneous
  Country: US (occurrence: US)
  Receive Date: 20200820
  Receipt Date: 20200826
  Transmission Date: 20201103
  Serious: Yes (Life-Threatening, Hospitalization, Other)
  Sender: FDA-Public Use
  Company Number: US-UCBSA-2020032286

PATIENT
  Age: 20 Year
  Sex: Male

DRUGS (4)
  1. CANNABIS [Concomitant]
     Active Substance: CANNABIS SATIVA SUBSP. INDICA TOP
     Indication: SUBSTANCE USE
     Dosage: UNK
  2. ALPRAZOLAM. [Concomitant]
     Active Substance: ALPRAZOLAM
     Indication: SUBSTANCE USE
     Dosage: UNK
  3. LSD [Concomitant]
     Active Substance: LYSERGIDE
     Indication: SUBSTANCE ABUSE
  4. LEVETIRACETAM. [Suspect]
     Active Substance: LEVETIRACETAM
     Indication: EPILEPSY
     Dosage: 500 MILLIGRAM, 2X/DAY (BID)

REACTIONS (3)
  - Depressive symptom [Recovered/Resolved]
  - Pneumonia aspiration [Unknown]
  - Suicide attempt [Recovered/Resolved]
